FAERS Safety Report 10548810 (Version 2)
Quarter: 2014Q4

REPORT INFORMATION
  Report Type: Report from Study
  Country: US (occurrence: US)
  Receive Date: 20141028
  Receipt Date: 20141122
  Transmission Date: 20150529
  Serious: Yes (Hospitalization)
  Sender: FDA-Public Use
  Company Number: US-ABBVIE-14K-163-1297811-00

PATIENT
  Age: 32 Year
  Sex: Female

DRUGS (3)
  1. HUMIRA [Suspect]
     Active Substance: ADALIMUMAB
     Indication: CROHN^S DISEASE
     Route: 065
     Dates: start: 2007
  2. BUTRANS [Suspect]
     Active Substance: BUPRENORPHINE
     Indication: PAIN
     Route: 065
     Dates: start: 20141012
  3. PENTASA [Suspect]
     Active Substance: MESALAMINE
     Indication: PRODUCT USED FOR UNKNOWN INDICATION
     Route: 065
     Dates: start: 20141104, end: 20141111

REACTIONS (13)
  - Nausea [Not Recovered/Not Resolved]
  - Splenomegaly [Recovering/Resolving]
  - Rectal fissure [Recovering/Resolving]
  - Dyspepsia [Not Recovered/Not Resolved]
  - Urinary tract infection [Recovering/Resolving]
  - Vomiting [Recovering/Resolving]
  - Hepatomegaly [Recovering/Resolving]
  - Unevaluable event [Recovering/Resolving]
  - Drug hypersensitivity [Recovering/Resolving]
  - Dehydration [Recovering/Resolving]
  - Abdominal pain upper [Recovering/Resolving]
  - Rectal haemorrhage [Recovering/Resolving]
  - Haemorrhoids thrombosed [Recovering/Resolving]

NARRATIVE: CASE EVENT DATE: 20141012
